FAERS Safety Report 16010189 (Version 4)
Quarter: 2019Q4

REPORT INFORMATION
  Report Type: Report from Study
  Country: DE (occurrence: DE)
  Receive Date: 20190227
  Receipt Date: 20191022
  Transmission Date: 20200122
  Serious: Yes (Death, Other)
  Sender: FDA-Public Use
  Company Number: DE-ROCHE-2269614

PATIENT
  Age: 76 Year
  Sex: Female
  Weight: 72 kg

DRUGS (28)
  1. VERAPAMIL [Concomitant]
     Active Substance: VERAPAMIL HYDROCHLORIDE
     Indication: ATRIAL FIBRILLATION
     Route: 048
     Dates: start: 20180306
  2. CALCILAC [CALCIUM CARBONATE;COLECALCIFEROL] [Concomitant]
     Indication: HYPOCALCAEMIA
     Route: 048
     Dates: start: 20180503
  3. FERROSANOL [Concomitant]
     Active Substance: FERROUS GLUCONATE
     Indication: IRON DEFICIENCY
     Route: 048
     Dates: start: 20180518
  4. IBUPROFEN. [Concomitant]
     Active Substance: IBUPROFEN
     Route: 048
     Dates: start: 20180202
  5. TORASEMID [Concomitant]
     Active Substance: TORSEMIDE
     Indication: OEDEMA
     Route: 048
     Dates: start: 20180404
  6. PREDNISOLON [PREDNISOLONE] [Concomitant]
     Active Substance: PREDNISOLONE
     Indication: ASTHMA
     Route: 048
     Dates: start: 20180409
  7. FUROSEMID [FUROSEMIDE] [Concomitant]
     Active Substance: FUROSEMIDE
     Indication: POLYURIA
     Route: 042
     Dates: start: 20180612, end: 20180612
  8. BUDESONID [Concomitant]
     Active Substance: BUDESONIDE
     Indication: ASTHMA
     Route: 048
     Dates: start: 19970101
  9. ELIQUIS [Concomitant]
     Active Substance: APIXABAN
     Indication: ATRIAL FIBRILLATION
     Route: 048
     Dates: start: 20180101
  10. PANTOZOL [Concomitant]
     Active Substance: PANTOPRAZOLE SODIUM
     Route: 048
     Dates: start: 19970101
  11. STEROFUNDIN [Concomitant]
     Active Substance: CALCIUM CHLORIDE\MAGNESIUM CHLORIDE\POTASSIUM CHLORIDE\SODIUM ACETATE\SODIUM CHLORIDE
     Dosage: LIQUID
     Route: 042
     Dates: start: 20180518
  12. PLACEBO [Suspect]
     Active Substance: UNSPECIFIED INGREDIENT
     Indication: MALIGNANT MELANOMA
     Dosage: DATE OF MOST RECENT DOSE OF PLACEBO PRIOR TO AE ONSET: 03/MAY/2018
     Route: 042
     Dates: start: 20180406
  13. MONTELUKAST [Concomitant]
     Active Substance: MONTELUKAST SODIUM
     Indication: ASTHMA
     Route: 048
     Dates: start: 19970101
  14. KALIUM VERLA [Concomitant]
     Active Substance: POTASSIUM CITRATE
     Indication: HYPOKALAEMIA
     Route: 048
     Dates: start: 20180518
  15. COBIMETINIB. [Suspect]
     Active Substance: COBIMETINIB
     Indication: MALIGNANT MELANOMA
     Dosage: DATE OF MOST RECENT DOSE OF COBIMETINIB PRIOR TO SAE ONSET: 17/MAY/2018 (60 MG)
     Route: 048
     Dates: start: 20180309
  16. PANTOPRAZOL [PANTOPRAZOLE] [Concomitant]
     Active Substance: PANTOPRAZOLE
     Route: 048
     Dates: start: 20180518
  17. FOSFOMYCIN [Concomitant]
     Active Substance: FOSFOMYCIN
     Route: 042
     Dates: start: 20180518, end: 20180519
  18. SITAGLIPTIN [Concomitant]
     Active Substance: SITAGLIPTIN
     Indication: DIABETES MELLITUS
     Route: 048
     Dates: start: 20020101
  19. PREDNISOLON [PREDNISOLONE] [Concomitant]
     Active Substance: PREDNISOLONE
     Indication: GASTRITIS
     Route: 048
     Dates: start: 20180518, end: 20180525
  20. CLINDAMYCIN. [Concomitant]
     Active Substance: CLINDAMYCIN
     Indication: C-REACTIVE PROTEIN INCREASED
     Route: 048
     Dates: start: 20180610
  21. CLEXANE [Concomitant]
     Active Substance: ENOXAPARIN SODIUM
     Route: 042
     Dates: start: 20180518, end: 20180528
  22. PREDNISOLON [PREDNISOLONE] [Concomitant]
     Active Substance: PREDNISOLONE
     Route: 048
     Dates: start: 20180526, end: 20180602
  23. METOCLOPRAMID [METOCLOPRAMIDE] [Concomitant]
     Active Substance: METOCLOPRAMIDE
     Indication: VOMITING
     Route: 048
     Dates: start: 20180413, end: 20180528
  24. ZOPICLON [Concomitant]
     Active Substance: ZOPICLONE
     Indication: SLEEP DISORDER
     Route: 048
     Dates: start: 20180518
  25. VEMURAFENIB. [Suspect]
     Active Substance: VEMURAFENIB
     Indication: MALIGNANT MELANOMA
     Dosage: DATE OF MOST RECENT DOSE OF VEMURAFENIB PRIOR TO SAE ONSET: 17/MAY/2018 (6 TABLETS)
     Route: 048
     Dates: start: 20180309
  26. LOPERAMID [Concomitant]
     Active Substance: LOPERAMIDE
     Indication: DIARRHOEA
     Route: 048
     Dates: start: 20180318
  27. PREDNISOLON [PREDNISOLONE] [Concomitant]
     Active Substance: PREDNISOLONE
     Route: 048
     Dates: start: 20180603
  28. CIPROFLOXACIN. [Concomitant]
     Active Substance: CIPROFLOXACIN
     Indication: CYSTITIS
     Route: 048
     Dates: start: 20180518, end: 20180604

REACTIONS (1)
  - Hyperthyroidism [Not Recovered/Not Resolved]

NARRATIVE: CASE EVENT DATE: 20180604
